FAERS Safety Report 7492185-8 (Version None)
Quarter: 2011Q2

REPORT INFORMATION
  Report Type: 
  Country: None (occurrence: None)
  Receive Date: 20110519
  Receipt Date: 20101020
  Transmission Date: 20111010
  Serious: No
  Sender: FDA-Public Use
  Company Number: US-NOVEN-ALL1-2010-05471

PATIENT
  Sex: Female
  Weight: 20.408 kg

DRUGS (2)
  1. VITAMINS NOS [Concomitant]
     Dosage: UNK MG, 1X/DAY:QD
     Route: 048
  2. DAYTRANA [Suspect]
     Dosage: 10 MG, 1X/DAY:QD
     Route: 062
     Dates: start: 20090101

REACTIONS (4)
  - PRODUCT QUALITY ISSUE [None]
  - DISTURBANCE IN ATTENTION [None]
  - PSYCHOMOTOR HYPERACTIVITY [None]
  - DRUG EFFECT DECREASED [None]
